FAERS Safety Report 6875451-6 (Version None)
Quarter: 2010Q3

REPORT INFORMATION
  Report Type: 
  Country: None (occurrence: None)
  Receive Date: 20100727
  Receipt Date: 20100715
  Transmission Date: 20110219
  Serious: Yes (Hospitalization)
  Sender: FDA-Public Use
  Company Number: CA-JNJFOC-20100111815

PATIENT
  Sex: Female
  Weight: 80 kg

DRUGS (11)
  1. REMICADE [Suspect]
     Indication: RHEUMATOID ARTHRITIS
     Route: 042
  2. REMICADE [Suspect]
     Route: 042
  3. PREDNISONE [Concomitant]
  4. PLAQUENIL [Concomitant]
  5. FOSAMAX [Concomitant]
  6. GABAPENTIN [Concomitant]
  7. QUININE SULFATE [Concomitant]
  8. OMEPRAZOLE [Concomitant]
  9. VITAMIN D3 [Concomitant]
  10. CALCIUM [Concomitant]
  11. CENTRUM MULTIVITAMINS [Concomitant]

REACTIONS (6)
  - ARTHRITIS BACTERIAL [None]
  - FRACTURED SACRUM [None]
  - OSTEONECROSIS [None]
  - PNEUMONIA PRIMARY ATYPICAL [None]
  - RIB FRACTURE [None]
  - VOCAL CORD PARALYSIS [None]
